FAERS Safety Report 15678751 (Version 1)
Quarter: 2018Q4

REPORT INFORMATION
  Report Type: Spontaneous
  Country: US (occurrence: US)
  Receive Date: 20181201
  Receipt Date: 20181201
  Transmission Date: 20190205
  Serious: Yes (Disabling)
  Sender: FDA-Public Use
  Company Number: None

PATIENT
  Age: 40 Year
  Sex: Male
  Weight: 70 kg

DRUGS (1)
  1. DULOXETINE, 60 MG [Suspect]
     Active Substance: DULOXETINE
     Dosage: ?          QUANTITY:1 TABLET(S);?
     Route: 048
     Dates: start: 20180901, end: 20181110

REACTIONS (8)
  - Dizziness [None]
  - Chills [None]
  - Vertigo [None]
  - Drug withdrawal syndrome [None]
  - Paraesthesia [None]
  - Ear pain [None]
  - Somnolence [None]
  - Lethargy [None]

NARRATIVE: CASE EVENT DATE: 20181201
